FAERS Safety Report 8223865-4 (Version None)
Quarter: 2012Q1

REPORT INFORMATION
  Report Type: 
  Country: None (occurrence: None)
  Receive Date: 20120321
  Receipt Date: 20120315
  Transmission Date: 20120608
  Serious: Yes (Death)
  Sender: FDA-Public Use
  Company Number: FR-PFIZER INC-2012044214

PATIENT
  Age: 68 Year
  Sex: Female

DRUGS (14)
  1. ZYVOX [Suspect]
     Dosage: UNK
     Dates: start: 20111230
  2. PIPERACILLIN AND TAZOBACTAM [Suspect]
     Indication: ANTIBIOTIC THERAPY
     Dosage: UNK
     Dates: start: 20111228, end: 20120104
  3. IDARUBICIN HCL [Suspect]
     Indication: ACUTE LEUKAEMIA
     Dosage: UNK
     Dates: start: 20111228
  4. EMEND [Suspect]
     Dosage: UNK
     Dates: start: 20111229
  5. AMIODARONE HCL [Suspect]
     Dosage: UNK
     Route: 042
     Dates: start: 20111230
  6. METOCLOPRAMIDE [Concomitant]
  7. CYTARABINE [Suspect]
     Indication: ACUTE LEUKAEMIA
     Dosage: 352 MG, UNK
     Route: 042
     Dates: start: 20111228, end: 20120103
  8. HYDREA [Suspect]
     Dosage: UNK
     Dates: start: 20111226, end: 20111228
  9. LEVOFLOXACIN [Suspect]
     Dosage: UNK
     Dates: start: 20111229
  10. ZOFRAN [Concomitant]
  11. VANCOMYCIN HCL [Suspect]
     Indication: ANTIBIOTIC THERAPY
     Dosage: UNK
     Dates: start: 20120105
  12. VALACYCLOVIR HYDROCHLORIDE [Suspect]
     Dosage: UNK
     Dates: start: 20111228
  13. FASTURTEC [Suspect]
     Dosage: UNK
     Dates: start: 20111228
  14. POSACONAZOLE [Concomitant]

REACTIONS (5)
  - DERMATITIS BULLOUS [None]
  - RENAL FAILURE ACUTE [None]
  - SEPTIC SHOCK [None]
  - INTESTINAL ISCHAEMIA [None]
  - APLASIA [None]
